FAERS Safety Report 15112192 (Version 1)
Quarter: 2018Q3

REPORT INFORMATION
  Report Type: Spontaneous
  Country: IT (occurrence: IT)
  Receive Date: 20180705
  Receipt Date: 20180705
  Transmission Date: 20181010
  Serious: Yes (Hospitalization, Other)
  Sender: FDA-Public Use
  Company Number: IT-PFIZER INC-2018269431

PATIENT
  Age: 45 Year
  Weight: 42 kg

DRUGS (3)
  1. TAXOL [Suspect]
     Active Substance: PACLITAXEL
     Indication: OVARIAN CANCER
  2. CARBOPLATIN. [Suspect]
     Active Substance: CARBOPLATIN
     Indication: OVARIAN CANCER
  3. BEVACIZUMAB. [Suspect]
     Active Substance: BEVACIZUMAB
     Indication: OVARIAN CANCER
     Dosage: 630 MG, UNK
     Dates: start: 20140922, end: 20150127

REACTIONS (4)
  - Hernia [Unknown]
  - Deep vein thrombosis [Unknown]
  - Subileus [Unknown]
  - Constipation [Unknown]

NARRATIVE: CASE EVENT DATE: 20141126
